FAERS Safety Report 5335876-7 (Version None)
Quarter: 2007Q2

REPORT INFORMATION
  Report Type: 
  Country: None (occurrence: None)
  Receive Date: 20070228
  Receipt Date: 20070105
  Transmission Date: 20071010
  Serious: Yes (Hospitalization)
  Sender: FDA-Public Use
  Company Number: 06P-163-0338421-00

PATIENT
  Age: 81 Year
  Sex: Male

DRUGS (4)
  1. VICODIN [Suspect]
     Indication: PAIN
  2. CETUXIMAB [Suspect]
     Indication: NON-SMALL CELL LUNG CANCER
     Dosage: 420 MG, ONCE  (1/CYCLICAL), TOTAL OF THREE DOSES, INTRAVENOUS
     Route: 042
     Dates: start: 20051006, end: 20061020
  3. CARBOPLATIN [Suspect]
     Indication: NON-SMALL CELL LUNG CANCER METASTATIC
     Dosage: 424 MG, ONCE, TOTAL OF TWO COURSES, INTRAVENOUS
     Route: 042
     Dates: start: 20051006
  4. PACLITAXEL [Suspect]
     Indication: NON-SMALL CELL LUNG CANCER METASTATIC
     Dosage: 378 MG, ONCE, TOTAL OF TWO COURSES, INTRAVENOUS
     Route: 042
     Dates: start: 20051006

REACTIONS (2)
  - CONSTIPATION [None]
  - URINARY RETENTION [None]
